FAERS Safety Report 20624928 (Version 1)
Quarter: 2022Q1

REPORT INFORMATION
  Report Type: Spontaneous
  Country: US (occurrence: US)
  Receive Date: 20220323
  Receipt Date: 20220323
  Transmission Date: 20220424
  Serious: No
  Sender: FDA-Public Use
  Company Number: US-AMGEN-USASP2022049795

PATIENT
  Sex: Female

DRUGS (2)
  1. OTEZLA [Suspect]
     Active Substance: APREMILAST
     Indication: Psoriasis
     Dosage: 30 MILLIGRAM, BID
     Route: 048
  2. CORDRAN [Concomitant]
     Active Substance: FLURANDRENOLIDE
     Dosage: 8OX3 TAP 4MCG/CM

REACTIONS (2)
  - Product administration interrupted [Recovered/Resolved]
  - Psoriasis [Recovered/Resolved]
